FAERS Safety Report 6194441-2 (Version None)
Quarter: 2009Q2

REPORT INFORMATION
  Report Type: 
  Country: None (occurrence: None)
  Receive Date: 20090515
  Receipt Date: 20090507
  Transmission Date: 20091009
  Serious: Yes (Hospitalization, Disabling)
  Sender: FDA-Public Use
  Company Number: GXKR2009GB05558

PATIENT
  Age: 68 Year
  Sex: Female

DRUGS (12)
  1. CIPROFLOXACIN [Suspect]
     Indication: URINARY TRACT INFECTION
     Dosage: 250 MG, BID, ORAL
     Route: 048
     Dates: start: 20090401, end: 20090407
  2. ACETLYSALICYLIC ACID (ACETYLSALICYLIC ACID) [Concomitant]
  3. ATENOLOL [Concomitant]
  4. ATORVASTATIN CALCIUM [Concomitant]
  5. BENDROFLUAZIDE (BENDROFLUMETHIAZIDE) [Concomitant]
  6. CODEINE PHOSPHATE AND ACETAMINOPHEN [Concomitant]
  7. ENALAPRIL MALEATE [Concomitant]
  8. LATANOPROST [Concomitant]
  9. LEVOTHYROXINE SODIUM [Concomitant]
  10. LOSARTAN POTASSIUM [Concomitant]
  11. METHYLDOPA [Concomitant]
  12. INSULIN PORCINE (INSULIN PORCINE) [Concomitant]

REACTIONS (4)
  - CONDITION AGGRAVATED [None]
  - DYSKINESIA [None]
  - MUSCLE SPASMS [None]
  - RENAL FAILURE CHRONIC [None]
